FAERS Safety Report 4654979-3 (Version None)
Quarter: 2005Q2

REPORT INFORMATION
  Report Type: 
  Country: None (occurrence: None)
  Receive Date: 20050504
  Receipt Date: 20050421
  Transmission Date: 20051028
  Serious: Yes (Other)
  Sender: FDA-Public Use
  Company Number: AZAUS200500055

PATIENT
  Age: 66 Year
  Sex: Male
  Weight: 101.1 kg

DRUGS (9)
  1. VIDAZA [Suspect]
     Indication: MYELODYSPLASTIC SYNDROME
     Dosage: 75 MG/M2 (150 MG, DAILY), SUBCUTANEOUS
     Route: 058
     Dates: start: 20050110, end: 20050116
  2. ALOXI [Suspect]
     Indication: PROPHYLAXIS OF NAUSEA AND VOMITING
     Dosage: 0.25 MG, INTRAVENOUS
     Route: 042
     Dates: start: 20050110, end: 20050110
  3. DEXAMETHASONE [Concomitant]
  4. HYTRIN [Concomitant]
  5. TRIAMTERENE/HYDROCHLOROTHIAZIDE (DYAZIDE) [Concomitant]
  6. ASPIRIN [Concomitant]
  7. ALEVE [Concomitant]
  8. VIDAZA [Suspect]
  9. VIDAZA [Suspect]

REACTIONS (5)
  - ASTHENIA [None]
  - CONVULSION [None]
  - FALL [None]
  - HYPOAESTHESIA [None]
  - MYOCLONUS [None]
